FAERS Safety Report 5998676 (Version 5)
Quarter: 2012Q4

REPORT INFORMATION
  Report Type: Report from Study
  Country: GB (occurrence: UG)
  Receive Date: 20060306
  Receipt Date: 20121005
  Transmission Date: 20130627
  Serious: Yes (Hospitalization, Disabling)
  Sender: FDA-Public Use
  Company Number: UG-GILEAD-2006-0009263

PATIENT
  Age: 45 Year
  Sex: Female

DRUGS (4)
  1. TENOFOVIR DISOPROXIL FUMARATE [Suspect]
     Indication: HIV INFECTION
     Dosage: UNK
     Dates: start: 20030820, end: 20051108
  2. 3TC [Suspect]
     Indication: HIV INFECTION
  3. EFAVIRENZ [Suspect]
     Indication: HIV INFECTION
     Dates: start: 20040217
  4. COTRIMOXAZOLE [Suspect]
     Dates: start: 20030820

REACTIONS (2)
  - Osteopenia [Not Recovered/Not Resolved]
  - Spinal compression fracture [Not Recovered/Not Resolved]
